FAERS Safety Report 6396639-7 (Version None)
Quarter: 2009Q4

REPORT INFORMATION
  Report Type: 
  Country: None (occurrence: None)
  Receive Date: 20091012
  Receipt Date: 20091006
  Transmission Date: 20100525
  Serious: Yes (Other)
  Sender: FDA-Public Use
  Company Number: DE-AMGEN-UK367050

PATIENT
  Sex: Female

DRUGS (5)
  1. NEULASTA [Suspect]
     Indication: CHEMOTHERAPY
     Route: 058
     Dates: start: 20090923
  2. EPIRUBICIN [Concomitant]
     Route: 065
     Dates: start: 20090922
  3. PACLITAXEL [Concomitant]
     Route: 065
  4. CYCLOPHOSPHAMIDE [Concomitant]
     Route: 065
  5. ANTIBIOTIC NOS [Concomitant]
     Route: 065

REACTIONS (5)
  - HYPOTENSION [None]
  - NAUSEA [None]
  - PANIC ATTACK [None]
  - PULSE ABNORMAL [None]
  - SYNCOPE [None]
